FAERS Safety Report 9452261 (Version 1)
Quarter: 2013Q3

REPORT INFORMATION
  Report Type: Other
  Country: FR (occurrence: FR)
  Receive Date: 20130812
  Receipt Date: 20130812
  Transmission Date: 20140515
  Serious: Yes (Other)
  Sender: FDA-Public Use
  Company Number: FR-BRISTOL-MYERS SQUIBB COMPANY-19177807

PATIENT
  Age: 25 Year
  Sex: Male

DRUGS (3)
  1. ARIPIPRAZOLE [Suspect]
     Indication: SCHIZOPHRENIA
     Dates: start: 201110
  2. CLOZAPINE [Interacting]
     Indication: SCHIZOPHRENIA
     Dosage: DRUG REINTRODUCED TO A DOSAGE OF 800MG/DAY.DOSAGE DECREASED TO 500MG/DAY.
     Dates: start: 201009
  3. LAMOTRIGINE [Concomitant]
     Indication: PSYCHIATRIC SYMPTOM

REACTIONS (2)
  - Intestinal obstruction [Recovering/Resolving]
  - Drug interaction [Unknown]
